FAERS Safety Report 17080396 (Version 2)
Quarter: 2019Q4

REPORT INFORMATION
  Report Type: Spontaneous
  Country: DE (occurrence: DE)
  Receive Date: 20191127
  Receipt Date: 20191217
  Transmission Date: 20200122
  Serious: Yes (Hospitalization)
  Sender: FDA-Public Use
  Company Number: NVSC2019DE046024

PATIENT
  Age: 74 Year
  Sex: Male
  Weight: 74.5 kg

DRUGS (15)
  1. AFLIBERCEPT [Suspect]
     Active Substance: AFLIBERCEPT
     Dosage: 298 MG, CYCLIC
     Route: 042
     Dates: start: 20190917, end: 20190917
  2. DIMETINDENE MALEATE [Concomitant]
     Active Substance: DIMETHINDENE MALEATE
     Indication: CHEMOTHERAPY
     Dosage: 4 MG TOTAL
     Route: 065
     Dates: start: 20190917, end: 20190917
  3. RANITIDIN [Concomitant]
     Active Substance: RANITIDINE HYDROCHLORIDE
     Indication: CHEMOTHERAPY
     Dosage: 50 MG, TOTAL
     Route: 065
     Dates: start: 20190917, end: 20190917
  4. OXALIPLATIN. [Suspect]
     Active Substance: OXALIPLATIN
     Indication: COLORECTAL CANCER METASTATIC
     Dosage: 158 MG, CYCLIC
     Route: 042
     Dates: start: 20190903, end: 20190903
  5. DEXAMETHASONE. [Concomitant]
     Active Substance: DEXAMETHASONE
     Indication: CHEMOTHERAPY
     Dosage: 20 MG, UNK
     Route: 065
     Dates: start: 20190917, end: 20190917
  6. 5-FLUOROURACILO [Suspect]
     Active Substance: FLUOROURACIL
     Dosage: 5200 MG, CYCLIC
     Route: 042
     Dates: start: 20190920, end: 20190920
  7. LEUCOVORIN. [Suspect]
     Active Substance: LEUCOVORIN
     Indication: COLORECTAL CANCER METASTATIC
     Dosage: 650 MG, CYCLIC
     Route: 042
     Dates: start: 20190903, end: 20190903
  8. LEUCOVORIN. [Suspect]
     Active Substance: LEUCOVORIN
     Dosage: 650 MG, CYCLIC
     Route: 042
     Dates: start: 20190917, end: 20190917
  9. AFLIBERCEPT [Suspect]
     Active Substance: AFLIBERCEPT
     Indication: COLORECTAL CANCER METASTATIC
     Dosage: 298 MG, CYCLIC
     Route: 042
     Dates: start: 20190903, end: 20190903
  10. TAVEGIL [Concomitant]
     Active Substance: CLEMASTINE FUMARATE
     Indication: ADVERSE EVENT
     Dosage: 2 MG TOTAL
     Route: 065
     Dates: start: 20190917, end: 20190917
  11. ONDANSETRON [Concomitant]
     Active Substance: ONDANSETRON
     Indication: CHEMOTHERAPY
     Dosage: 8 MG, UNK
     Route: 065
     Dates: start: 20190917, end: 20190917
  12. BISOPROLOL [Concomitant]
     Active Substance: BISOPROLOL
     Indication: ILL-DEFINED DISORDER
     Dosage: 2.5 MG, TOTAL
     Route: 065
  13. OXALIPLATIN. [Suspect]
     Active Substance: OXALIPLATIN
     Dosage: 158 MG, CYCLIC
     Route: 042
     Dates: start: 20190917, end: 20190917
  14. 5-FLUOROURACILO [Suspect]
     Active Substance: FLUOROURACIL
     Indication: COLORECTAL CANCER METASTATIC
     Dosage: 5200 MG, CYCLIC
     Route: 042
     Dates: start: 20190903, end: 20190903
  15. DEXAMETHASONE. [Concomitant]
     Active Substance: DEXAMETHASONE
     Dosage: 8 MG, QD
     Route: 065
     Dates: start: 20190918, end: 20190919

REACTIONS (2)
  - Pneumonitis [Not Recovered/Not Resolved]
  - Cardiac failure chronic [Recovered/Resolved]

NARRATIVE: CASE EVENT DATE: 20190919
